FAERS Safety Report 7912011-X (Version None)
Quarter: 2011Q4

REPORT INFORMATION
  Report Type: 
  Country: None (occurrence: None)
  Receive Date: 20111114
  Receipt Date: 20111104
  Transmission Date: 20120403
  Serious: Yes (Hospitalization)
  Sender: FDA-Public Use
  Company Number: US-EISAI INC-E7389-01724-CLI-US

PATIENT
  Sex: Female
  Weight: 94 kg

DRUGS (1)
  1. EPIRUBICIN HYDROCHLORIDE [Suspect]
     Indication: BREAST CANCER
     Route: 041
     Dates: start: 20110906

REACTIONS (3)
  - BACTERAEMIA [None]
  - FAILURE TO THRIVE [None]
  - NEUTROPENIA [None]
